FAERS Safety Report 7505592-1 (Version None)
Quarter: 2011Q2

REPORT INFORMATION
  Report Type: 
  Country: None (occurrence: None)
  Receive Date: 20110526
  Receipt Date: 20110520
  Transmission Date: 20111010
  Serious: Yes (Other)
  Sender: FDA-Public Use
  Company Number: BR-PFIZER INC-2011109187

PATIENT
  Sex: Female

DRUGS (11)
  1. CARVEDILOL [Concomitant]
     Dosage: UNK
  2. METFORMIN [Concomitant]
     Indication: DIABETES MELLITUS
     Dosage: 850 (UNITS UNSPECIFIED); UNK
  3. PURAN T4 [Concomitant]
     Indication: HYPOTHYROIDISM
     Dosage: 75 (UNITS UNSPECIFIED); UNK
  4. LORAZEPAM [Suspect]
     Indication: INSOMNIA
     Dosage: 1/2 TABLET
  5. FUROSEMIDE [Concomitant]
     Indication: FLUID RETENTION
     Dosage: UNK
  6. CAPTOPRIL [Concomitant]
     Indication: HYPERTENSION
     Dosage: UNK
  7. PANTOPRAZOLE [Concomitant]
     Dosage: UNK
  8. CENTRUM [Concomitant]
     Dosage: UNK
  9. LYRICA [Suspect]
     Indication: PAIN
     Dosage: 75 MG, 1X/DAY AT NIGHT
     Route: 048
     Dates: start: 20110510
  10. DIGOXIN [Concomitant]
     Dosage: UNK
  11. VITAMIN E [Concomitant]
     Dosage: UNK

REACTIONS (4)
  - LISTLESS [None]
  - INSOMNIA [None]
  - DRUG INTERACTION [None]
  - SEDATION [None]
